FAERS Safety Report 26021562 (Version 2)
Quarter: 2025Q4

REPORT INFORMATION
  Report Type: Report from Study
  Country: TW (occurrence: TW)
  Receive Date: 20251110
  Receipt Date: 20251218
  Transmission Date: 20260119
  Serious: No
  Sender: BAYER HEALTHCARE PHARMACEUTICALS INC.
  Company Number: TW-BAYER-2025A148553

PATIENT
  Age: 72 Year
  Sex: Female

DRUGS (2)
  1. STIVARGA [Suspect]
     Active Substance: REGORAFENIB MONOHYDRATE
     Indication: Hepatocellular carcinoma
     Dosage: 2 DF, QD
     Route: 048
     Dates: start: 20251029, end: 20251202
  2. STIVARGA [Suspect]
     Active Substance: REGORAFENIB MONOHYDRATE
     Indication: Hepatocellular carcinoma
     Dosage: 1 DF, QD
     Route: 048
     Dates: start: 20251203

REACTIONS (6)
  - Abdominal pain [Recovering/Resolving]
  - Vomiting [Recovering/Resolving]
  - Incorrect dose administered [None]
  - Product prescribing issue [None]
  - Underdose [None]
  - Prescribed underdose [None]

NARRATIVE: CASE EVENT DATE: 20251001
